FAERS Safety Report 7599962-3 (Version None)
Quarter: 2011Q3

REPORT INFORMATION
  Report Type: 
  Country: None (occurrence: None)
  Receive Date: 20110711
  Receipt Date: 20110707
  Transmission Date: 20111222
  Serious: No
  Sender: FDA-Public Use
  Company Number: US-PFIZER INC-2011153924

PATIENT
  Sex: Female
  Weight: 70.295 kg

DRUGS (2)
  1. CHANTIX [Suspect]
     Indication: SMOKING CESSATION THERAPY
     Dosage: 1 MG, 2X/DAY
     Route: 048
     Dates: start: 20110704
  2. AMOXICILLIN [Concomitant]
     Indication: LUNG INFECTION
     Dosage: UNK
     Dates: start: 20110627, end: 20110101

REACTIONS (5)
  - NECK PAIN [None]
  - INSOMNIA [None]
  - VISION BLURRED [None]
  - NAUSEA [None]
  - DIZZINESS [None]
